FAERS Safety Report 24709788 (Version 4)
Quarter: 2025Q2

REPORT INFORMATION
  Report Type: Spontaneous
  Country: ES (occurrence: ES)
  Receive Date: 20241209
  Receipt Date: 20250611
  Transmission Date: 20250717
  Serious: Yes (Death, Other)
  Sender: CELLTRION
  Company Number: ES-CELLTRION INC.-2024ES030949

PATIENT

DRUGS (14)
  1. BEVACIZUMAB [Suspect]
     Active Substance: BEVACIZUMAB
     Indication: Glioblastoma
     Route: 042
     Dates: start: 202306
  2. BEVACIZUMAB [Suspect]
     Active Substance: BEVACIZUMAB
     Indication: Glioblastoma multiforme
     Route: 042
  3. BEVACIZUMAB [Suspect]
     Active Substance: BEVACIZUMAB
     Indication: Radiation necrosis
  4. REGORAFENIB [Suspect]
     Active Substance: REGORAFENIB
     Indication: Glioblastoma
     Route: 065
     Dates: start: 202304
  5. REGORAFENIB [Suspect]
     Active Substance: REGORAFENIB
     Indication: Glioblastoma multiforme
     Route: 065
  6. REGORAFENIB [Suspect]
     Active Substance: REGORAFENIB
     Route: 065
  7. REGORAFENIB [Suspect]
     Active Substance: REGORAFENIB
  8. REGORAFENIB [Suspect]
     Active Substance: REGORAFENIB
     Route: 065
  9. REGORAFENIB [Suspect]
     Active Substance: REGORAFENIB
     Route: 065
     Dates: start: 202305
  10. TEMOZOLOMIDE [Concomitant]
     Active Substance: TEMOZOLOMIDE
  11. TEMOZOLOMIDE [Concomitant]
     Active Substance: TEMOZOLOMIDE
  12. TEMOZOLOMIDE [Concomitant]
     Active Substance: TEMOZOLOMIDE
     Dates: start: 202211
  13. TEMOZOLOMIDE [Concomitant]
     Active Substance: TEMOZOLOMIDE
     Dates: start: 202212
  14. DEXAMETHASONE [Concomitant]
     Active Substance: DEXAMETHASONE

REACTIONS (10)
  - Cerebral haemorrhage [Fatal]
  - Toxicity to various agents [Fatal]
  - Brain injury [Fatal]
  - Sudden death [Fatal]
  - Radiation necrosis [Unknown]
  - Decorticate posture [Unknown]
  - Palmar-plantar erythrodysaesthesia syndrome [Unknown]
  - Off label use [Unknown]
  - Therapy partial responder [Unknown]
  - Drug effective for unapproved indication [Unknown]
